FAERS Safety Report 21740687 (Version 1)
Quarter: 2022Q4

REPORT INFORMATION
  Report Type: Spontaneous
  Country: US (occurrence: None)
  Receive Date: 20221215
  Receipt Date: 20221215
  Transmission Date: 20230113
  Serious: Yes (Hospitalization)
  Sender: FDA-Public Use
  Company Number: None

PATIENT
  Age: 83 Year
  Sex: Male
  Weight: 58 kg

DRUGS (1)
  1. CIPROFLOXACIN HYDROCHLORIDE [Suspect]
     Active Substance: CIPROFLOXACIN HYDROCHLORIDE
     Indication: Urinary tract infection
     Dosage: 500 MG BID PO?
     Route: 048
     Dates: start: 20220109, end: 20220112

REACTIONS (11)
  - Confusional state [None]
  - Fatigue [None]
  - Hallucination [None]
  - Altered state of consciousness [None]
  - Urinary tract infection [None]
  - Mental status changes [None]
  - Delirium [None]
  - COVID-19 [None]
  - Normal pressure hydrocephalus [None]
  - Cerebral atrophy [None]
  - Cerebrovascular disorder [None]

NARRATIVE: CASE EVENT DATE: 20220112
